FAERS Safety Report 24995579 (Version 6)
Quarter: 2025Q4

REPORT INFORMATION
  Report Type: Spontaneous
  Country: CA (occurrence: CA)
  Receive Date: 20250221
  Receipt Date: 20251215
  Transmission Date: 20260117
  Serious: Yes (Disabling, Other)
  Sender: IPSEN BIOPHARMACEUTICALS, INC.
  Company Number: CA-IPSEN Group, Research and Development-2025-04085

PATIENT
  Age: 39 Year
  Sex: Male
  Weight: 90 kg

DRUGS (5)
  1. DYSPORT [Suspect]
     Active Substance: ABOBOTULINUMTOXINA
     Indication: Skin wrinkling
     Dosage: PARENTERAL
     Route: 030
     Dates: start: 20240713, end: 20240713
  2. DYSPORT [Suspect]
     Active Substance: ABOBOTULINUMTOXINA
     Indication: Off label use
     Dosage: PARENTERAL
     Route: 030
  3. DYSPORT [Suspect]
     Active Substance: ABOBOTULINUMTOXINA
     Indication: Facial cosmetic procedure
  4. ANTIPRURITICS (ANTIHISTAMINES, ANESTHETICS, ETC) [Concomitant]
  5. VENLAFAXINE HYDROCHLORIDE [Concomitant]
     Active Substance: VENLAFAXINE HYDROCHLORIDE
     Indication: Product used for unknown indication
     Dosage: CAPSULE,?EXTENDED RELEASE

REACTIONS (14)
  - Dizziness [Not Recovered/Not Resolved]
  - Tinnitus [Not Recovered/Not Resolved]
  - Deafness [Not Recovered/Not Resolved]
  - Suicidal ideation [Not Recovered/Not Resolved]
  - Facial paralysis [Unknown]
  - Ear congestion [Not Recovered/Not Resolved]
  - Dry skin [Not Recovered/Not Resolved]
  - Weight increased [Not Recovered/Not Resolved]
  - Off label use [Unknown]
  - Depression [Not Recovered/Not Resolved]
  - Impaired quality of life [Not Recovered/Not Resolved]
  - Impaired work ability [Not Recovered/Not Resolved]
  - Neuralgia [Not Recovered/Not Resolved]
  - Facial wasting [Unknown]

NARRATIVE: CASE EVENT DATE: 20240713
